FAERS Safety Report 5558323-9 (Version None)
Quarter: 2007Q4

REPORT INFORMATION
  Report Type: 
  Country: None (occurrence: None)
  Receive Date: 20071130
  Receipt Date: 20070908
  Transmission Date: 20080405
  Serious: No
  Sender: FDA-Public Use
  Company Number: US200709001530

PATIENT
  Age: 69 Year
  Sex: Female

DRUGS (5)
  1. BYETTA [Suspect]
     Indication: BLOOD GLUCOSE INCREASED
     Dosage: 5 UG, 2/D, SUBCUTANEOUS; 10 UG, EACH MORNING, SUBCUTANEOUS; 5 UG, EACH MORNING, SUBCUTANEOUS
     Route: 058
     Dates: start: 20070804, end: 20070902
  2. BYETTA [Suspect]
     Indication: BLOOD GLUCOSE INCREASED
     Dosage: 5 UG, 2/D, SUBCUTANEOUS; 10 UG, EACH MORNING, SUBCUTANEOUS; 5 UG, EACH MORNING, SUBCUTANEOUS
     Route: 058
     Dates: start: 20070902
  3. BYETTA [Suspect]
     Indication: BLOOD GLUCOSE INCREASED
     Dosage: 5 UG, 2/D, SUBCUTANEOUS; 10 UG, EACH MORNING, SUBCUTANEOUS; 5 UG, EACH MORNING, SUBCUTANEOUS
     Route: 058
     Dates: start: 20070902
  4. DEXAMETHASONE TAB [Concomitant]
  5. METFORMIN HCL [Concomitant]

REACTIONS (1)
  - BLOOD GLUCOSE INCREASED [None]
